FAERS Safety Report 4733200-1 (Version None)
Quarter: 2005Q3

REPORT INFORMATION
  Report Type: 
  Country: None (occurrence: None)
  Receive Date: 20050801
  Receipt Date: 20050720
  Transmission Date: 20060218
  Serious: Yes (Other)
  Sender: FDA-Public Use
  Company Number: GB-2005-012301

PATIENT
  Age: 27 Year
  Sex: Male

DRUGS (13)
  1. LEUKINE [Suspect]
     Indication: CROHN'S DISEASE
     Dosage: 6 ?G/KG, 1X/DAY, SUBCUTANEOUS
     Route: 058
     Dates: start: 20050601
  2. FERROUS SULFATE                       (FERROUS SULAFE) [Concomitant]
  3. FOLIC ACID [Concomitant]
  4. POLYETHYLENE GLYCOL                 (MACROGOL) [Concomitant]
  5. TRAMADOL HCL [Concomitant]
  6. KETOCONAZOLE [Concomitant]
  7. ASIRIN (ACETYLSALICYLIC ACID) [Concomitant]
  8. IBUPROFEN [Concomitant]
  9. CITRAMAG (MAGNESIUM CITRATE) [Concomitant]
  10. SENNA (SENNA ALEXANDRINA) [Concomitant]
  11. MIDAZOLAM HCL [Concomitant]
  12. HYOSCINE HBR HYT [Concomitant]
  13. FENTANYL [Concomitant]

REACTIONS (6)
  - BACK PAIN [None]
  - DEPRESSED LEVEL OF CONSCIOUSNESS [None]
  - FOOD CRAVING [None]
  - HYPOGLYCAEMIA [None]
  - NIGHT SWEATS [None]
  - SOMNOLENCE [None]
